FAERS Safety Report 9772393 (Version 5)
Quarter: 2014Q1

REPORT INFORMATION
  Report Type: Spontaneous
  Country: CN (occurrence: CN)
  Receive Date: 20131219
  Receipt Date: 20140130
  Transmission Date: 20141002
  Serious: Yes (Death, Other)
  Sender: FDA-Public Use
  Company Number: CN-CELGENEUS-035-21880-13102076

PATIENT
  Age: 70 Year
  Sex: Male

DRUGS (2)
  1. REVLIMID [Suspect]
     Indication: PLASMA CELL MYELOMA
     Dosage: 25 MILLIGRAM
     Route: 048
     Dates: start: 20131001, end: 20131010
  2. REVLIMID [Suspect]
     Route: 048

REACTIONS (4)
  - Hepatic failure [Fatal]
  - Hyperbilirubinaemia [Fatal]
  - Pneumonia [Fatal]
  - Bone marrow failure [Not Recovered/Not Resolved]
